FAERS Safety Report 6778786-0 (Version None)
Quarter: 2010Q2

REPORT INFORMATION
  Report Type: 
  Country: None (occurrence: None)
  Receive Date: 20100618
  Receipt Date: 20100610
  Transmission Date: 20101027
  Serious: Yes (Death, Other)
  Sender: FDA-Public Use
  Company Number: TR-PFIZER INC-2010070986

PATIENT
  Age: 36 Year
  Sex: Female

DRUGS (6)
  1. NELFINAVIR MESYLATE [Suspect]
     Indication: HIV INFECTION
     Route: 065
  2. ZIDOVUDINE [Suspect]
     Indication: HIV INFECTION
     Route: 065
  3. GANCICLOVIR SODIUM [Suspect]
     Indication: CYTOMEGALOVIRUS CHORIORETINITIS
     Route: 042
  4. GANCICLOVIR [Suspect]
     Indication: CYTOMEGALOVIRUS CHORIORETINITIS
     Route: 048
  5. STAVUDINE [Suspect]
     Indication: HIV INFECTION
     Route: 065
  6. DIDANOSINE [Suspect]
     Indication: HIV INFECTION
     Route: 065

REACTIONS (4)
  - DRUG INEFFECTIVE [None]
  - LUNG DISORDER [None]
  - RETINITIS [None]
  - UVEITIS [None]
